FAERS Safety Report 7178409-5 (Version None)
Quarter: 2010Q4

REPORT INFORMATION
  Report Type: 
  Country: None (occurrence: None)
  Receive Date: 20101220
  Receipt Date: 20101213
  Transmission Date: 20110411
  Serious: Yes (Hospitalization)
  Sender: FDA-Public Use
  Company Number: FR-ABBOTT-10P-056-0691283-00

PATIENT
  Sex: Female

DRUGS (4)
  1. HUMIRA [Suspect]
     Indication: CROHN'S DISEASE
     Dates: start: 20080101, end: 20101201
  2. HUMIRA [Suspect]
     Indication: RHEUMATOID ARTHRITIS
  3. ENBREL [Concomitant]
     Indication: CROHN'S DISEASE
     Dates: start: 20101201
  4. ENBREL [Concomitant]
     Indication: RHEUMATOID ARTHRITIS

REACTIONS (4)
  - DRUG TOXICITY [None]
  - LIVER DISORDER [None]
  - PRURITUS [None]
  - RASH GENERALISED [None]
